FAERS Safety Report 14171108 (Version 2)
Quarter: 2017Q4

REPORT INFORMATION
  Report Type: Spontaneous
  Country: US (occurrence: US)
  Receive Date: 20171108
  Receipt Date: 20171130
  Transmission Date: 20180321
  Serious: Yes (Hospitalization, Disabling, Other)
  Sender: FDA-Public Use
  Company Number: US-JNJFOC-20171015144

PATIENT
  Age: 60 Year
  Sex: Male
  Weight: 77.57 kg

DRUGS (6)
  1. PANTOPRAZOLE [Concomitant]
     Active Substance: PANTOPRAZOLE
     Route: 048
     Dates: start: 201701
  2. SUCRALFATE. [Concomitant]
     Active Substance: SUCRALFATE
     Route: 065
     Dates: start: 201701
  3. XARELTO [Suspect]
     Active Substance: RIVAROXABAN
     Indication: ATRIAL FIBRILLATION
     Route: 048
     Dates: start: 20160816, end: 20170401
  4. TOPROL XL [Concomitant]
     Active Substance: METOPROLOL SUCCINATE
     Route: 048
     Dates: start: 20160810
  5. AMIODARONE [Concomitant]
     Active Substance: AMIODARONE
     Route: 048
     Dates: start: 20170119
  6. XARELTO [Suspect]
     Active Substance: RIVAROXABAN
     Indication: CEREBROVASCULAR ACCIDENT PROPHYLAXIS
     Route: 048
     Dates: start: 20160816, end: 20170401

REACTIONS (9)
  - Cerebral haematoma [Not Recovered/Not Resolved]
  - Subarachnoid haemorrhage [Recovering/Resolving]
  - Atrial flutter [Unknown]
  - Leukocytosis [Unknown]
  - Intestinal pseudo-obstruction [Recovered/Resolved]
  - Cerebral haemorrhage [Recovering/Resolving]
  - Acute kidney injury [Unknown]
  - Pneumonia pseudomonal [Recovered/Resolved]
  - Blood glucose increased [Unknown]

NARRATIVE: CASE EVENT DATE: 201704
